FAERS Safety Report 14862121 (Version 2)
Quarter: 2018Q3

REPORT INFORMATION
  Report Type: Spontaneous
  Country: US (occurrence: US)
  Receive Date: 20180508
  Receipt Date: 20180813
  Transmission Date: 20181010
  Serious: No
  Sender: FDA-Public Use
  Company Number: US-CELLTRION INC.-2018US017522

PATIENT

DRUGS (2)
  1. INFLECTRA [Suspect]
     Active Substance: INFLIXIMAB-DYYB
     Dosage: 1031.8 MG INFUSION EVERY 4 WEEKS
     Route: 042
     Dates: start: 20180111, end: 20180111
  2. INFLECTRA [Suspect]
     Active Substance: INFLIXIMAB-DYYB
     Indication: RHEUMATOID ARTHRITIS
     Dosage: 1031.8 MG INFUSION EVERY 4 WEEKS
     Route: 042
     Dates: start: 201712, end: 201712

REACTIONS (1)
  - Drug prescribing error [Unknown]
